FAERS Safety Report 16744698 (Version 1)
Quarter: 2019Q3

REPORT INFORMATION
  Report Type: Spontaneous
  Country: FR (occurrence: FR)
  Receive Date: 20190827
  Receipt Date: 20190827
  Transmission Date: 20191005
  Serious: Yes (Life-Threatening, Hospitalization, Other)
  Sender: FDA-Public Use
  Company Number: FR-PFIZER INC-2019364667

PATIENT
  Age: 39 Year
  Sex: Female
  Weight: 61 kg

DRUGS (4)
  1. LAROXYL [Suspect]
     Active Substance: AMITRIPTYLINE HYDROCHLORIDE
     Indication: POISONING DELIBERATE
     Dosage: 200 MG, SINGLE
     Route: 048
     Dates: start: 20190103, end: 20190103
  2. VENLAFAXINE HCL [Suspect]
     Active Substance: VENLAFAXINE HYDROCHLORIDE
     Indication: POISONING DELIBERATE
     Dosage: 2175 MG, SINGLE
     Route: 048
     Dates: start: 20190103, end: 20190103
  3. TERCIAN [CYAMEMAZINE] [Suspect]
     Active Substance: CYAMEMAZINE
     Indication: POISONING DELIBERATE
     Dosage: 1 DF, SINGLE
     Route: 048
     Dates: start: 20190103, end: 20190103
  4. BROMAZEPAM [Suspect]
     Active Substance: BROMAZEPAM
     Indication: POISONING DELIBERATE
     Dosage: 180 MG, SINGLE
     Route: 048
     Dates: start: 20190103, end: 20190103

REACTIONS (2)
  - Coma [Recovered/Resolved]
  - Intentional overdose [Unknown]

NARRATIVE: CASE EVENT DATE: 20190103
